FAERS Safety Report 25733399 (Version 10)
Quarter: 2025Q4

REPORT INFORMATION
  Report Type: Report from Study
  Country: CA (occurrence: CA)
  Receive Date: 20250828
  Receipt Date: 20251125
  Transmission Date: 20260117
  Serious: Yes (Hospitalization, Other)
  Sender: ABBVIE
  Company Number: CA-ABBVIE-6404464

PATIENT
  Age: 74 Year
  Sex: Male

DRUGS (9)
  1. VYALEV [Suspect]
     Active Substance: FOSCARBIDOPA\FOSLEVODOPA
     Indication: Product used for unknown indication
     Dosage: BASE RATE OF 0.51 ML/HR, A HIGH RATE OF 0.53 ML/HR, A LOW RATE OF 0.22 ML/HR, ?EVENING DOSE (ED) ...
     Route: 058
     Dates: start: 20250324
  2. VYALEV [Suspect]
     Active Substance: FOSCARBIDOPA\FOSLEVODOPA
     Dosage: 0.51 / 0.48 / 0.30 FOR THE ADDITIONAL DOSE / 0.22-0.24.?FIRST ADMIN DATE: 2025
     Route: 058
  3. Sandoz entacapone [Concomitant]
     Indication: Product used for unknown indication
  4. ALENDRONATE SODIUM [Concomitant]
     Active Substance: ALENDRONATE SODIUM
     Indication: Product used for unknown indication
  5. MIRTAZAPINE [Concomitant]
     Active Substance: MIRTAZAPINE
     Indication: Product used for unknown indication
  6. LANSOPRAZOLE [Concomitant]
     Active Substance: LANSOPRAZOLE
     Indication: Product used for unknown indication
  7. CARBIDOPA\LEVODOPA [Concomitant]
     Active Substance: CARBIDOPA\LEVODOPA
     Indication: Product used for unknown indication
     Dosage: AA
  8. CARBIDOPA\LEVODOPA [Concomitant]
     Active Substance: CARBIDOPA\LEVODOPA
     Indication: Product used for unknown indication
  9. AMANTADINE [Concomitant]
     Active Substance: AMANTADINE
     Indication: Product used for unknown indication

REACTIONS (7)
  - Gait inability [Unknown]
  - Diffuse large B-cell lymphoma [Unknown]
  - Catheter site pain [Recovering/Resolving]
  - General physical health deterioration [Unknown]
  - Device issue [Unknown]
  - Product storage error [Unknown]
  - Catheter site swelling [Recovering/Resolving]

NARRATIVE: CASE EVENT DATE: 20250101
